FAERS Safety Report 8273667-8 (Version None)
Quarter: 2012Q2

REPORT INFORMATION
  Report Type: 
  Country: None (occurrence: None)
  Receive Date: 20120411
  Receipt Date: 20120229
  Transmission Date: 20120825
  Serious: No
  Sender: FDA-Public Use
  Company Number: US-TEVA-325473USA

PATIENT
  Sex: Female
  Weight: 65.83 kg

DRUGS (2)
  1. SERTRALINE HYDROCHLORIDE [Concomitant]
     Indication: DEPRESSION
     Route: 048
  2. NUVIGIL [Suspect]
     Indication: NARCOLEPSY
     Route: 048

REACTIONS (2)
  - PALPITATIONS [None]
  - SOMNOLENCE [None]
